FAERS Safety Report 5753918-1 (Version None)
Quarter: 2008Q2

REPORT INFORMATION
  Report Type: 
  Country: None (occurrence: None)
  Receive Date: 20080530
  Receipt Date: 20080522
  Transmission Date: 20081010
  Serious: Yes (Death, Hospitalization)
  Sender: FDA-Public Use
  Company Number: B0522816A

PATIENT
  Age: 71 Year
  Sex: Male
  Weight: 58 kg

DRUGS (2)
  1. ADEFOVIR DIPIVOXIL KIT [Suspect]
     Dosage: 10MG PER DAY
     Route: 065
     Dates: start: 20030920
  2. LAMIVUDINE [Suspect]
     Route: 065
     Dates: start: 20021001

REACTIONS (19)
  - ABDOMINAL PAIN [None]
  - ALANINE AMINOTRANSFERASE INCREASED [None]
  - ANOREXIA [None]
  - ASCITES [None]
  - ASTHENIA [None]
  - BLOOD AMYLASE INCREASED [None]
  - BLOOD CREATININE INCREASED [None]
  - BLOOD LACTATE DEHYDROGENASE INCREASED [None]
  - ENCEPHALOPATHY [None]
  - HBV DNA INCREASED [None]
  - HEPATITIS B VIRUS [None]
  - JAUNDICE [None]
  - LIPASE INCREASED [None]
  - PANCREATIC NECROSIS [None]
  - PANCREATITIS [None]
  - PANCREATITIS ACUTE [None]
  - PATHOGEN RESISTANCE [None]
  - VOMITING [None]
  - WHITE BLOOD CELL COUNT INCREASED [None]
